FAERS Safety Report 6123153-6 (Version None)
Quarter: 2009Q1

REPORT INFORMATION
  Report Type: 
  Country: None (occurrence: None)
  Receive Date: 20090318
  Receipt Date: 20090312
  Transmission Date: 20090719
  Serious: Yes (Other)
  Sender: FDA-Public Use
  Company Number: US-JNJFOC-20090304037

PATIENT
  Sex: Male

DRUGS (2)
  1. PEPCID AC [Suspect]
     Route: 048
  2. PEPCID AC [Suspect]
     Indication: DYSPEPSIA
     Route: 048

REACTIONS (4)
  - ASTHENIA [None]
  - HAEMATEMESIS [None]
  - HEADACHE [None]
  - INCORRECT DOSE ADMINISTERED [None]
